FAERS Safety Report 9009723 (Version 1)
Quarter: 2013Q1

REPORT INFORMATION
  Report Type: Spontaneous
  Country: US (occurrence: US)
  Receive Date: 20130110
  Receipt Date: 20130110
  Transmission Date: 20140127
  Serious: Yes (Hospitalization)
  Sender: FDA-Public Use
  Company Number: US-CELGENEUS-163-20785-13010799

PATIENT
  Sex: Male

DRUGS (6)
  1. THALOMID [Suspect]
     Indication: PRODUCT USED FOR UNKNOWN INDICATION
     Route: 048
     Dates: start: 200612, end: 200701
  2. CALCIUM +D [Concomitant]
     Indication: SUPPLEMENTATION THERAPY
     Dosage: 1 TABLET
     Route: 048
  3. MULTIVITAMINS [Concomitant]
     Indication: SUPPLEMENTATION THERAPY
     Dosage: 1 TABLET
     Route: 048
  4. NIACIN CR [Concomitant]
     Indication: HYPERCHOLESTEROLAEMIA
     Dosage: 200 MILLIGRAM
     Route: 048
  5. OMEGA 3 FATTY ACID [Concomitant]
     Indication: SUPPLEMENTATION THERAPY
     Dosage: 1000 MILLIGRAM
     Route: 048
  6. DEXAMETHASONE [Concomitant]
     Indication: PRODUCT USED FOR UNKNOWN INDICATION
     Route: 065
     Dates: start: 200612, end: 200703

REACTIONS (2)
  - Hepatotoxicity [Unknown]
  - Drug hypersensitivity [Unknown]
